FAERS Safety Report 6063814-0 (Version None)
Quarter: 2009Q1

REPORT INFORMATION
  Report Type: 
  Country: None (occurrence: None)
  Receive Date: 20090204
  Receipt Date: 20090126
  Transmission Date: 20090719
  Serious: Yes (Other)
  Sender: FDA-Public Use
  Company Number: US-JNJFOC-20090107316

PATIENT
  Sex: Female
  Weight: 68.49 kg

DRUGS (1)
  1. RISPERDAL [Suspect]
     Indication: BLADDER DISORDER
     Route: 048

REACTIONS (7)
  - ABDOMINAL PAIN UPPER [None]
  - DRY SKIN [None]
  - GASTROINTESTINAL DISORDER [None]
  - LIP DRY [None]
  - MOVEMENT DISORDER [None]
  - OFF LABEL USE [None]
  - TYPE 2 DIABETES MELLITUS [None]
